FAERS Safety Report 10148504 (Version 2)
Quarter: 2014Q2

REPORT INFORMATION
  Report Type: Spontaneous
  Country: US (occurrence: US)
  Receive Date: 20140501
  Receipt Date: 20140602
  Transmission Date: 20141212
  Serious: No
  Sender: FDA-Public Use
  Company Number: US-AMGEN-USASP2014030241

PATIENT
  Age: 23 Year
  Sex: Female
  Weight: 48.62 kg

DRUGS (7)
  1. ENBREL [Suspect]
     Indication: PSORIASIS
     Dosage: 50 MG, QWK
     Route: 058
     Dates: start: 20140416
  2. ENBREL [Suspect]
     Indication: PSORIATIC ARTHROPATHY
  3. MELOXICAM [Concomitant]
     Dosage: 15 MG, QD
     Route: 048
  4. ALEVE [Concomitant]
     Dosage: 220 MG, BID
     Route: 048
  5. ALOE VERA [Concomitant]
     Dosage: 4 TBSPS, QD
     Route: 048
  6. VITAMIN D                          /00107901/ [Concomitant]
     Dosage: 50000 IU, QWK
     Route: 048
  7. TURMERIC                           /01079601/ [Concomitant]
     Dosage: 500 MG, QD
     Route: 048

REACTIONS (3)
  - Headache [Recovered/Resolved]
  - Oropharyngeal pain [Recovered/Resolved]
  - Nasal congestion [Not Recovered/Not Resolved]
